FAERS Safety Report 5890152-9 (Version None)
Quarter: 2008Q3

REPORT INFORMATION
  Report Type: 
  Country: None (occurrence: None)
  Receive Date: 20080919
  Receipt Date: 20080909
  Transmission Date: 20090109
  Serious: Yes (Death)
  Sender: FDA-Public Use
  Company Number: US-PFIZER INC-2008075454

PATIENT
  Sex: Female

DRUGS (14)
  1. XANAX [Suspect]
     Indication: ANXIETY
     Route: 048
  2. OXYMORPHONE HCL [Suspect]
     Indication: PAIN IN EXTREMITY
     Route: 048
     Dates: start: 20080201
  3. METHADONE HCL [Suspect]
  4. PLAVIX [Concomitant]
  5. PREVACID [Concomitant]
  6. REGLAN [Concomitant]
     Route: 048
  7. HYZAAR [Concomitant]
  8. LYRICA [Concomitant]
  9. LORCET-HD [Concomitant]
  10. LANTUS [Concomitant]
  11. NOVOLOG [Concomitant]
  12. ZONEGRAN [Concomitant]
  13. TRILEPTAL [Concomitant]
  14. CYMBALTA [Concomitant]

REACTIONS (2)
  - DIABETES MELLITUS [None]
  - DRUG TOXICITY [None]
